FAERS Safety Report 6850422-4 (Version None)
Quarter: 2010Q3

REPORT INFORMATION
  Report Type: 
  Country: None (occurrence: None)
  Receive Date: 20100716
  Receipt Date: 20071015
  Transmission Date: 20110219
  Serious: No
  Sender: FDA-Public Use
  Company Number: US-PFIZER INC-2007088123

PATIENT
  Sex: Female
  Weight: 59 kg

DRUGS (10)
  1. CHANTIX [Suspect]
     Indication: SMOKING CESSATION THERAPY
     Dates: start: 20070927, end: 20071014
  2. PROPRANOLOL [Concomitant]
  3. LORAZEPAM [Concomitant]
  4. LEXAPRO [Concomitant]
  5. FLEXERIL [Concomitant]
  6. TOPAMAX [Concomitant]
  7. SEROQUEL [Concomitant]
  8. ZOCOR [Concomitant]
  9. BUTALBITAL W/ ASPIRIN + CAFFEINE [Concomitant]
  10. SUMATRIPTAN SUCCINATE [Concomitant]
     Indication: MIGRAINE

REACTIONS (1)
  - VISION BLURRED [None]
